FAERS Safety Report 8025702-X (Version None)
Quarter: 2012Q1

REPORT INFORMATION
  Report Type: 
  Country: None (occurrence: None)
  Receive Date: 20120105
  Receipt Date: 20120104
  Transmission Date: 20120608
  Serious: Yes (Death)
  Sender: FDA-Public Use
  Company Number: US-B.I. PHARMACEUTICALS,INC./RIDGEFIELD-2011-BP-28265BP

PATIENT
  Sex: Male

DRUGS (11)
  1. PROAIR HFA INHLAER [Concomitant]
     Route: 055
     Dates: end: 20111017
  2. KLOR-CON M10 [Concomitant]
     Dates: end: 20111017
  3. WARFARIN SODIUM [Concomitant]
     Dates: end: 20111017
  4. ENALAPRIL MALEATE [Concomitant]
     Dates: end: 20111017
  5. FUROSEMIDE [Concomitant]
     Dates: end: 20111017
  6. CEPHALEXIN [Concomitant]
     Dates: end: 20111017
  7. SPIRIVA [Suspect]
     Indication: DYSPNOEA
     Dosage: 18 MCG
     Dates: start: 20050101, end: 20111017
  8. ADVAIR DISKUS 100/50 [Concomitant]
     Dates: end: 20111017
  9. QVAR 40 [Concomitant]
     Route: 055
     Dates: end: 20111017
  10. CARVEDILOL [Concomitant]
     Dates: end: 20111017
  11. DIGOXIN [Concomitant]
     Dates: end: 20111017

REACTIONS (1)
  - DEATH [None]
